FAERS Safety Report 8057179-2 (Version None)
Quarter: 2012Q1

REPORT INFORMATION
  Report Type: 
  Country: None (occurrence: None)
  Receive Date: 20120119
  Receipt Date: 20120111
  Transmission Date: 20120608
  Serious: Yes (Other)
  Sender: FDA-Public Use
  Company Number: PHEH2012US001054

PATIENT
  Sex: Female

DRUGS (19)
  1. CELEBREX [Concomitant]
     Dosage: 200 MG, UNK
  2. GLYBURIDE [Concomitant]
     Dosage: 1 DF, 5MG 4XDAY,
  3. Q- TUSSIN DM [Concomitant]
     Dosage: 2TAP SOON AS NEEDED 10/100MG 5ML.
  4. LOVASTATIN [Concomitant]
     Dosage: 20 MG, UNK
  5. MELOXICAM [Concomitant]
     Dosage: 10.5 MG, UNK
  6. TYLENOL W/ CODEINE [Concomitant]
     Dosage: 1 DF, 300/30MG 1XDAY,
  7. COMBIGAN [Concomitant]
     Dosage: 1DROP 2XDAY,
  8. METHYLPREDNISOLONE [Concomitant]
     Dosage: 4MG AS DIRECTED,
  9. BILBERRY [Concomitant]
     Dosage: 1000 MG, UNK
  10. CEPHALEXIN [Concomitant]
     Dosage: 500 MG, UNK
  11. LISINOPRIL [Concomitant]
     Dosage: 20MG 1XDAY,
  12. AZOPT [Concomitant]
     Dosage: % EYE DROP 1DROP 3XDAY
  13. SINGULAIR [Concomitant]
     Dosage: 10 MG, UNK
  14. METFORMIN [Concomitant]
     Dosage: 500 MG, 4 X DAY
  15. NEXIUM [Concomitant]
     Dosage: 40MG 2XDAY
  16. GABAPENTIN [Concomitant]
     Dosage: 400MG 3XDAY,
  17. RECLAST [Suspect]
     Dosage: 5 MG/100 ML/YEAR
     Route: 042
     Dates: start: 20120110
  18. BENZONATATE [Concomitant]
     Dosage: 100 MG, 3X DAY
  19. NIFEDICAL [Concomitant]
     Dosage: 60MG 1XDAY,

REACTIONS (6)
  - FATIGUE [None]
  - NARCOLEPSY [None]
  - MEMORY IMPAIRMENT [None]
  - UNRESPONSIVE TO STIMULI [None]
  - TREMOR [None]
  - PAIN [None]
